FAERS Safety Report 9907094 (Version 1)
Quarter: 2014Q1

REPORT INFORMATION
  Report Type: Spontaneous
  Country: DE (occurrence: DE)
  Receive Date: 20140218
  Receipt Date: 20140218
  Transmission Date: 20141002
  Serious: Yes (Other)
  Sender: FDA-Public Use
  Company Number: DE-PFIZER INC-2014039696

PATIENT
  Age: 36 Year
  Sex: Male

DRUGS (1)
  1. SOBELIN [Suspect]
     Dosage: 300 MG, 3X/DAY
     Dates: start: 20140209, end: 20140210

REACTIONS (2)
  - Aphagia [Unknown]
  - Parosmia [Unknown]
